FAERS Safety Report 15897451 (Version 1)
Quarter: 2019Q1

REPORT INFORMATION
  Report Type: Spontaneous
  Country: US (occurrence: US)
  Receive Date: 20190131
  Receipt Date: 20190131
  Transmission Date: 20190417
  Serious: Yes (Hospitalization)
  Sender: FDA-Public Use
  Company Number: US-PRINSTON PHARMACEUTICAL INC.-2019PRN00082

PATIENT
  Age: 31 Year
  Sex: Female

DRUGS (3)
  1. VALSARTAN AND SACUBITRIL [Suspect]
     Active Substance: SACUBITRIL\VALSARTAN
     Dosage: 51/49 MG, 2X/DAY
     Route: 065
  2. VALSARTAN AND SACUBITRIL [Suspect]
     Active Substance: SACUBITRIL\VALSARTAN
     Dosage: UNK
     Route: 065
  3. VALSARTAN AND SACUBITRIL [Suspect]
     Active Substance: SACUBITRIL\VALSARTAN
     Indication: CARDIAC FAILURE
     Dosage: 26/24 MG, 2X/DAY
     Route: 065

REACTIONS (8)
  - Paranoia [Recovered/Resolved]
  - Delusion [Recovered/Resolved]
  - Insomnia [Recovered/Resolved]
  - Hallucination, tactile [Recovered/Resolved]
  - Restlessness [Recovered/Resolved]
  - Cognitive disorder [Unknown]
  - Confabulation [Recovered/Resolved]
  - Hallucinations, mixed [Recovered/Resolved]
